FAERS Safety Report 6755370-6 (Version None)
Quarter: 2010Q2

REPORT INFORMATION
  Report Type: 
  Country: None (occurrence: None)
  Receive Date: 20100604
  Receipt Date: 20100524
  Transmission Date: 20101027
  Serious: Yes (Other)
  Sender: FDA-Public Use
  Company Number: PT-PFIZER INC-2010065116

PATIENT
  Age: 52 Year
  Sex: Female

DRUGS (5)
  1. NEURONTIN [Suspect]
     Indication: NEURALGIA
     Dosage: 300 MG, 3X/DAY
     Route: 048
     Dates: start: 20100505, end: 20100511
  2. NEURONTIN [Suspect]
     Dosage: 400 MG, 3X/DAY
     Route: 048
     Dates: start: 20100512
  3. OMEPRAZOLE [Concomitant]
     Indication: PROPHYLAXIS AGAINST GASTROINTESTINAL ULCER
     Dosage: 20 MG, 2X/DAY
     Route: 048
     Dates: start: 20100404
  4. CYMBALTA [Concomitant]
     Indication: NEURALGIA
     Dosage: 60 MG, UNK
     Route: 048
     Dates: start: 20100512
  5. LORNOXICAM [Concomitant]
     Indication: NEURALGIA
     Dosage: 8 MG, 2X/DAY
     Dates: start: 20100512

REACTIONS (5)
  - ALOPECIA [None]
  - BRADYPHRENIA [None]
  - CONSTIPATION [None]
  - HERPES VIRUS INFECTION [None]
  - RESPIRATORY TRACT INFECTION VIRAL [None]
